FAERS Safety Report 8225826-8 (Version None)
Quarter: 2012Q1

REPORT INFORMATION
  Report Type: 
  Country: None (occurrence: None)
  Receive Date: 20120321
  Receipt Date: 20120313
  Transmission Date: 20120608
  Serious: Yes (Other)
  Sender: FDA-Public Use
  Company Number: BR-ROCHE-1050710

PATIENT
  Age: 58 Year
  Sex: Male

DRUGS (2)
  1. LUCENTIS [Suspect]
     Indication: HAEMORRHAGE
  2. LUCENTIS [Suspect]
     Indication: CATARACT OPERATION
     Route: 050

REACTIONS (4)
  - RENAL DISORDER [None]
  - BLINDNESS UNILATERAL [None]
  - RETINOPATHY [None]
  - DIABETES MELLITUS [None]
